FAERS Safety Report 9256358 (Version 1)
Quarter: 2013Q2

REPORT INFORMATION
  Report Type: Spontaneous
  Country: US (occurrence: US)
  Receive Date: 20130425
  Receipt Date: 20130425
  Transmission Date: 20140414
  Serious: No
  Sender: FDA-Public Use
  Company Number: US-ASTRAZENECA-2013SE23810

PATIENT
  Age: 68 Year
  Sex: Female
  Weight: 61.7 kg

DRUGS (5)
  1. SYMBICORT [Suspect]
     Indication: ASTHMA
     Dosage: 160/4.5 2 PUFFS BID
     Route: 055
     Dates: start: 2011
  2. SYMBICORT [Suspect]
     Indication: ASTHMA
     Dosage: EACH YEAR IN AUGUST REDUCES HER SYMBICORT USE TO UNKNOWN DOSE
     Route: 055
  3. COMBIVENT [Concomitant]
     Indication: CHRONIC OBSTRUCTIVE PULMONARY DISEASE
     Route: 055
  4. LOSARTIN [Concomitant]
     Indication: HYPERTENSION
     Route: 048
  5. HCTZ [Concomitant]
     Indication: HYPERTENSION
     Route: 048

REACTIONS (2)
  - Tremor [Not Recovered/Not Resolved]
  - Intentional drug misuse [Unknown]
